FAERS Safety Report 24961356 (Version 1)
Quarter: 2025Q1

REPORT INFORMATION
  Report Type: Spontaneous
  Country: GB (occurrence: GB)
  Receive Date: 20250212
  Receipt Date: 20250212
  Transmission Date: 20250408
  Serious: Yes (Life-Threatening, Other)
  Sender: CHATTEM
  Company Number: GB-MHRA-TPP21457883C5754347YC1732542185095

PATIENT
  Age: 69 Year
  Sex: Male
  Weight: 86 kg

DRUGS (5)
  1. FEXOFENADINE [Suspect]
     Active Substance: FEXOFENADINE HYDROCHLORIDE
     Indication: Ill-defined disorder
     Dates: start: 20240904, end: 20241004
  2. PROPOFOL [Suspect]
     Active Substance: PROPOFOL
     Indication: Ill-defined disorder
     Dates: start: 20241119
  3. LACIDIPINE [Suspect]
     Active Substance: LACIDIPINE
     Indication: Ill-defined disorder
     Dates: start: 20240520
  4. METRONIDAZOLE [Suspect]
     Active Substance: METRONIDAZOLE
     Indication: Ill-defined disorder
     Dates: start: 20240906, end: 20241004
  5. DICLOFENAC DIETHYLAMINE [Suspect]
     Active Substance: DICLOFENAC DIETHYLAMINE
     Indication: Ill-defined disorder
     Dates: start: 20240712

REACTIONS (1)
  - Anaphylactic reaction [Recovered/Resolved]
